FAERS Safety Report 23840823 (Version 1)
Quarter: 2024Q2

REPORT INFORMATION
  Report Type: Spontaneous
  Country: US (occurrence: US)
  Receive Date: 20240510
  Receipt Date: 20240510
  Transmission Date: 20240716
  Serious: Yes (Other)
  Sender: FDA-Public Use
  Company Number: US-Accord-423492

PATIENT
  Sex: Female

DRUGS (1)
  1. METHOTREXATE [Suspect]
     Active Substance: METHOTREXATE
     Indication: Keratoacanthoma
     Route: 026

REACTIONS (3)
  - Pancytopenia [Recovered/Resolved]
  - Mucocutaneous toxicity [Recovered/Resolved]
  - Off label use [Unknown]
